FAERS Safety Report 11169424 (Version 1)
Quarter: 2015Q2

REPORT INFORMATION
  Report Type: Spontaneous
  Country: US (occurrence: US)
  Receive Date: 20150605
  Receipt Date: 20150605
  Transmission Date: 20150821
  Serious: No
  Sender: FDA-Public Use
  Company Number: US-GLAXOSMITHKLINE-US2015075736

PATIENT
  Sex: Male

DRUGS (1)
  1. FLOVENT DISKUS [Suspect]
     Active Substance: FLUTICASONE PROPIONATE
     Indication: EOSINOPHILIC OESOPHAGITIS
     Dosage: UNK
     Route: 065
     Dates: start: 2007

REACTIONS (1)
  - Therapeutic response unexpected [Unknown]
